FAERS Safety Report 6920820-9 (Version None)
Quarter: 2010Q3

REPORT INFORMATION
  Report Type: 
  Country: None (occurrence: None)
  Receive Date: 20100812
  Receipt Date: 20100802
  Transmission Date: 20110219
  Serious: Yes (Hospitalization)
  Sender: FDA-Public Use
  Company Number: US-CELGENEUS-163-21880-10080209

PATIENT
  Sex: Female

DRUGS (2)
  1. REVLIMID [Suspect]
     Indication: MULTIPLE MYELOMA
     Route: 048
     Dates: start: 20100312
  2. REVLIMID [Suspect]
     Route: 048
     Dates: start: 20100805

REACTIONS (6)
  - ANAEMIA [None]
  - BACK PAIN [None]
  - DECUBITUS ULCER [None]
  - FALL [None]
  - NAUSEA [None]
  - OEDEMA PERIPHERAL [None]
